FAERS Safety Report 10463776 (Version 1)
Quarter: 2014Q3

REPORT INFORMATION
  Report Type: Spontaneous
  Country: FR (occurrence: None)
  Receive Date: 20140917
  Receipt Date: 20140917
  Transmission Date: 20150326
  Serious: Yes (Death, Hospitalization)
  Sender: FDA-Public Use
  Company Number: 2475681

PATIENT
  Age: 73 Year
  Sex: Male

DRUGS (8)
  1. ATRACURIUM BESILATE [Suspect]
     Active Substance: ATRACURIUM BESYLATE
     Indication: GENERAL ANAESTHESIA
     Route: 042
     Dates: start: 20140708, end: 20140708
  2. CRESTOR [Concomitant]
     Active Substance: ROSUVASTATIN CALCIUM
  3. STAGID [Concomitant]
     Active Substance: METFORMIN PAMOATE
  4. REMIFENTANIL [Suspect]
     Active Substance: REMIFENTANIL
     Indication: GENERAL ANAESTHESIA
     Route: 042
     Dates: start: 20140708, end: 20140708
  5. HYPNOMIDATE [Suspect]
     Active Substance: ETOMIDATE SULFATE
     Indication: GENERAL ANAESTHESIA
     Route: 042
     Dates: start: 20140708, end: 20140708
  6. INEXIUM [Concomitant]
     Active Substance: ESOMEPRAZOLE
  7. ASPEGIC [Concomitant]
     Active Substance: ASPIRIN DL-LYSINE
  8. LASIX [Concomitant]
     Active Substance: FUROSEMIDE

REACTIONS (4)
  - Cardiogenic shock [None]
  - Shock haemorrhagic [None]
  - Anaphylactic shock [None]
  - Multi-organ failure [None]

NARRATIVE: CASE EVENT DATE: 20140708
